FAERS Safety Report 20998923 (Version 2)
Quarter: 2022Q3

REPORT INFORMATION
  Report Type: Spontaneous
  Country: FR (occurrence: FR)
  Receive Date: 20220623
  Receipt Date: 20220817
  Transmission Date: 20221026
  Serious: Yes (Other)
  Sender: FDA-Public Use
  Company Number: FR-NOVARTISPH-NVSC2022FR136903

PATIENT
  Sex: Female

DRUGS (1)
  1. KESIMPTA [Suspect]
     Active Substance: OFATUMUMAB
     Indication: Product used for unknown indication
     Dosage: 20 MG
     Route: 065
     Dates: start: 202112

REACTIONS (5)
  - Pneumonia [Recovering/Resolving]
  - Lung disorder [Recovering/Resolving]
  - Pyrexia [Unknown]
  - Cough [Not Recovered/Not Resolved]
  - Influenza [Recovering/Resolving]
